FAERS Safety Report 12084069 (Version 1)
Quarter: 2016Q1

REPORT INFORMATION
  Report Type: Other
  Country: DE (occurrence: DE)
  Receive Date: 20160217
  Receipt Date: 20160217
  Transmission Date: 20160526
  Serious: Yes (Hospitalization)
  Sender: FDA-Public Use
  Company Number: DE-MYLANLABS-2016M1005265

PATIENT

DRUGS (4)
  1. ALENDRONATE [Suspect]
     Active Substance: ALENDRONATE SODIUM
     Indication: OSTEOPOROSIS
     Dosage: 70 MG, QW (DAILY DOSE: 70 MG MILLGRAM(S) EVERY WEEKS)
     Route: 048
     Dates: start: 20150808, end: 20151115
  2. SIMVASTATIN. [Concomitant]
     Active Substance: SIMVASTATIN
     Indication: HYPERCHOLESTEROLAEMIA
     Dosage: 40 MG, QD (DAILY DOSE: 40 MG MILLGRAM(S) EVERY DAYS)
     Route: 048
  3. RAMIPRIL. [Concomitant]
     Active Substance: RAMIPRIL
     Indication: HYPERTENSION
     Dosage: 1 DF, QD (DAILY DOSE: 1 DF DOSAGE FORM EVERY DAYS)
     Route: 048
  4. METOPROLOL. [Concomitant]
     Active Substance: METOPROLOL
     Indication: HYPERTENSION
     Dosage: 47.5 MG, QD (DAILY DOSE: 47.5 MG MILLGRAM(S) EVERY DAYS)
     Route: 048

REACTIONS (2)
  - Headache [Recovered/Resolved]
  - Visual impairment [Recovered/Resolved]

NARRATIVE: CASE EVENT DATE: 201508
